FAERS Safety Report 12474419 (Version 1)
Quarter: 2016Q2

REPORT INFORMATION
  Report Type: Other
  Country: US (occurrence: US)
  Receive Date: 20160617
  Receipt Date: 20160617
  Transmission Date: 20160815
  Serious: No
  Sender: FDA-Public Use
  Company Number: US-JUBILANT GENERICS LIMITED-1053901

PATIENT
  Age: 78 Year
  Sex: Male
  Weight: 83.9 kg

DRUGS (6)
  1. VITAMIN D3DIETARY SUPPLEMEN DIETARY SUPPLEMENT [Concomitant]
     Active Substance: ALPHA-TOCOPHEROL\CHOLECALCIFEROL
  2. VALACYCLOVIR [Suspect]
     Active Substance: VALACYCLOVIR HYDROCHLORIDE
  3. TRYPTOPHAN NIGHT [Concomitant]
  4. FLUOCINONIDE CREAM [Concomitant]
     Active Substance: FLUOCINONIDE
  5. COENZYME Q10 [Concomitant]
     Active Substance: UBIDECARENONE
  6. EPA DHA [Concomitant]

REACTIONS (2)
  - Insomnia [Unknown]
  - Hypersensitivity [Not Recovered/Not Resolved]

NARRATIVE: CASE EVENT DATE: 20150429
